FAERS Safety Report 4310822-3 (Version None)
Quarter: 2004Q1

REPORT INFORMATION
  Report Type: 
  Country: None (occurrence: None)
  Receive Date: 20040302
  Receipt Date: 20040216
  Transmission Date: 20041129
  Serious: Yes (Life-Threatening)
  Sender: FDA-Public Use
  Company Number: 2004AP00435

PATIENT
  Age: 64 Year
  Sex: Male

DRUGS (13)
  1. XYLOCAINE VISCOUS [Suspect]
     Indication: ANAESTHESIA
     Dosage: 100 MG DAILY PO
     Route: 048
     Dates: start: 20030904, end: 20030904
  2. XYLOCAINE [Suspect]
     Indication: ANAESTHESIA
     Dosage: 400 MG DAILY TP
     Route: 061
     Dates: start: 20030904, end: 20030904
  3. XYLOCAINE [Suspect]
     Indication: LOCAL ANAESTHESIA
     Dates: start: 20030904, end: 20030904
  4. ROHYPNOL [Suspect]
     Dosage: 0.4 MG DAILY
     Dates: start: 20030904, end: 20030904
  5. BUSCOPAN [Suspect]
     Dosage: 20 MG DAILY
     Dates: start: 20030904, end: 20030904
  6. TAKEPRON [Concomitant]
  7. MUCOSTA [Concomitant]
  8. XYLOCAINE [Concomitant]
  9. XYLOCAINE PUMP SPRAY [Concomitant]
  10. ROHYPNOL [Concomitant]
  11. GASTER [Concomitant]
  12. GASTROM [Concomitant]
  13. XYLOCAINE VISCOUS [Concomitant]

REACTIONS (7)
  - CARDIO-RESPIRATORY ARREST [None]
  - COMA [None]
  - DEHYDRATION [None]
  - HYPOXIC ENCEPHALOPATHY [None]
  - MUSCLE CRAMP [None]
  - SHOCK [None]
  - VENTRICULAR FIBRILLATION [None]
